FAERS Safety Report 10410945 (Version 1)
Quarter: 2014Q2

REPORT INFORMATION
  Report Type: Spontaneous
  Country: US (occurrence: None)
  Receive Date: 20140604
  Receipt Date: 20140604
  Transmission Date: 20141212
  Serious: Yes (Hospitalization, Other)
  Sender: FDA-Public Use
  Company Number: 20100528CINRY1504

PATIENT
  Age: 37 Year
  Sex: Female

DRUGS (13)
  1. CINRYZE [Suspect]
     Indication: HEREDITARY ANGIOEDEMA
     Dosage: 2 IN 1 WEEK
     Dates: start: 2009
  2. CINRYZE [Suspect]
     Dosage: 2 IN 1 WEEK
     Dates: start: 2009
  3. ARIXTRA (FONDAPARUNIX SODIUM) [Concomitant]
  4. PROMETHAZINE (PROMETHAZINE) [Concomitant]
  5. XANAX (ALPRAZOLAM) [Concomitant]
  6. ALBUTEROL (SALBUTAMOL) [Concomitant]
  7. OXYCONTIN (OXYCODONE HYDROCHLORIDE) [Concomitant]
  8. DILAUDID (HYDROMORPHONE HYDROCHLORIDE) [Concomitant]
  9. FENTANYL (FENTANYL) [Concomitant]
  10. MIRALAX MACROGOL) [Concomitant]
  11. PRILOSEC (OMEPRAZOLE) [Concomitant]
  12. POTASSIUM (POTASSIUM) [Concomitant]
  13. DANASOL (DANAZOL) [Concomitant]

REACTIONS (5)
  - Hereditary angioedema [None]
  - Nasopharyngitis [None]
  - Disease progression [None]
  - Malaise [None]
  - Drug tolerance [None]
